FAERS Safety Report 23394636 (Version 1)
Quarter: 2024Q1

REPORT INFORMATION
  Report Type: Report from Study
  Country: CN (occurrence: CN)
  Receive Date: 20240112
  Receipt Date: 20240112
  Transmission Date: 20240410
  Serious: Yes (Disabling, Other)
  Sender: FDA-Public Use
  Company Number: CN-ASTELLAS-2024US000399

PATIENT
  Age: 53 Year
  Sex: Male

DRUGS (9)
  1. IBRUTINIB [Suspect]
     Active Substance: IBRUTINIB
     Indication: Mantle cell lymphoma
     Dosage: 560 MG, ONCE DAILY, (EVERY 1 DAY)
     Route: 048
     Dates: start: 20231213
  2. SODIUM CHLORIDE [Concomitant]
     Active Substance: SODIUM CHLORIDE
     Indication: Mantle cell lymphoma
     Dosage: 100 ML, ONCE DAILY, (EVERY 1 DAY)
     Route: 041
     Dates: start: 20231211, end: 20231211
  3. SODIUM CHLORIDE [Concomitant]
     Active Substance: SODIUM CHLORIDE
     Indication: Mantle cell lymphoma
     Dosage: 500 ML, ONCE DAILY,  (EVERY 1 DAY)
     Route: 041
     Dates: start: 20231212, end: 20231213
  4. SODIUM CHLORIDE [Concomitant]
     Active Substance: SODIUM CHLORIDE
     Indication: Mantle cell lymphoma
     Dosage: 500 ML, ONCE DAILY, (EVERY 1 DAY)
     Route: 041
     Dates: start: 202312, end: 202312
  5. SODIUM CHLORIDE [Concomitant]
     Active Substance: SODIUM CHLORIDE
     Indication: Mantle cell lymphoma
     Dosage: 200 ML, ONCE DAILY, (EVERY 1 DAY)
     Route: 041
     Dates: start: 202312, end: 202312
  6. RITUXIMAB [Suspect]
     Active Substance: RITUXIMAB
     Indication: Mantle cell lymphoma
     Dosage: 200 MG, ONCE DAILY, (EVERY 1 DAY)
     Route: 041
     Dates: start: 20231211, end: 20231211
  7. RITUXIMAB [Suspect]
     Active Substance: RITUXIMAB
     Indication: Mantle cell lymphoma
     Dosage: 100 MG, ONCE DAILY, (EVERY 1 DAY)
     Route: 041
     Dates: start: 202312, end: 202312
  8. RITUXIMAB [Suspect]
     Active Substance: RITUXIMAB
     Indication: Mantle cell lymphoma
     Dosage: 500 MG, ONCE DAILY, (EVERY 1 DAY)
     Route: 041
     Dates: start: 202312, end: 202312
  9. BENDAMUSTINE HYDROCHLORIDE [Suspect]
     Active Substance: BENDAMUSTINE HYDROCHLORIDE
     Indication: Mantle cell lymphoma
     Dosage: 185 MG, ONCE DAILY, (EVERY 1 DAY)
     Route: 042
     Dates: start: 20231212, end: 20231213

REACTIONS (4)
  - Granulocyte count decreased [Unknown]
  - White blood cell count decreased [Unknown]
  - Platelet count decreased [Unknown]
  - Off label use [Unknown]

NARRATIVE: CASE EVENT DATE: 20231212
